FAERS Safety Report 5632083-5 (Version None)
Quarter: 2008Q1

REPORT INFORMATION
  Report Type: 
  Country: None (occurrence: None)
  Receive Date: 20080220
  Receipt Date: 20080215
  Transmission Date: 20080703
  Serious: Yes (Other)
  Sender: FDA-Public Use
  Company Number: B0500391A

PATIENT
  Age: 86 Year
  Sex: Female

DRUGS (10)
  1. REQUIP [Suspect]
     Indication: PARKINSONISM
     Dosage: .5MG TWICE PER DAY
     Route: 048
     Dates: start: 20070529, end: 20071215
  2. CARBIDOPA AND LEVODOPA [Concomitant]
     Route: 048
     Dates: start: 20070501
  3. CABERGOLINE [Concomitant]
     Indication: PARKINSONISM
     Dosage: .25MG PER DAY
     Route: 048
     Dates: start: 20061118, end: 20061204
  4. CABERGOLINE [Concomitant]
     Dosage: .5MG PER DAY
     Route: 048
     Dates: start: 20061205, end: 20061218
  5. CABERGOLINE [Concomitant]
     Dosage: 1MG PER DAY
     Route: 048
     Dates: start: 20061219, end: 20070528
  6. CARBIDOPA AND LEVODOPA [Concomitant]
     Indication: PARKINSONISM
     Dosage: 100MG PER DAY
     Route: 048
     Dates: start: 20070220, end: 20070222
  7. CARBIDOPA AND LEVODOPA [Concomitant]
     Dosage: 200MG PER DAY
     Route: 048
     Dates: start: 20070223, end: 20070226
  8. CARBIDOPA AND LEVODOPA [Concomitant]
     Dosage: 300MG PER DAY
     Route: 048
     Dates: start: 20070227, end: 20070305
  9. CARBIDOPA AND LEVODOPA [Concomitant]
     Route: 048
     Dates: start: 20070306, end: 20070528
  10. CARBIDOPA AND LEVODOPA [Concomitant]
     Route: 048
     Dates: start: 20070529

REACTIONS (6)
  - DIZZINESS [None]
  - FALL [None]
  - GAIT DISTURBANCE [None]
  - LOSS OF CONSCIOUSNESS [None]
  - SUDDEN ONSET OF SLEEP [None]
  - SYNCOPE [None]
